FAERS Safety Report 6794729-8 (Version None)
Quarter: 2010Q2

REPORT INFORMATION
  Report Type: 
  Country: None (occurrence: None)
  Receive Date: 20100624
  Receipt Date: 20100624
  Transmission Date: 20101027
  Serious: Yes (Other)
  Sender: FDA-Public Use
  Company Number: None

PATIENT
  Sex: Female

DRUGS (1)
  1. ACTOS [Suspect]
     Indication: DIABETES MELLITUS
     Dosage: 45MG 1 X DAILY ORALLY
     Route: 048
     Dates: start: 20090401, end: 20100501

REACTIONS (6)
  - ANAEMIA [None]
  - COUGH [None]
  - FATIGUE [None]
  - FLUID RETENTION [None]
  - OROPHARYNGEAL PAIN [None]
  - WEIGHT INCREASED [None]
